FAERS Safety Report 16851261 (Version 1)
Quarter: 2019Q3

REPORT INFORMATION
  Report Type: Spontaneous
  Country: CH (occurrence: CH)
  Receive Date: 20190925
  Receipt Date: 20190925
  Transmission Date: 20191005
  Serious: Yes (Hospitalization)
  Sender: FDA-Public Use
  Company Number: CH-PFIZER INC-2019405556

PATIENT
  Age: 54 Year
  Sex: Male

DRUGS (14)
  1. VITAMIN D3 STREULI [Concomitant]
     Active Substance: CHOLECALCIFEROL
     Dosage: 1000 IU, 1X/DAY (4000IE/ML 1000E/D)
  2. DIGOXIN. [Interacting]
     Active Substance: DIGOXIN
     Dosage: 0.25 MG, 1X/DAY  (1-0-0)
     Route: 048
     Dates: start: 20190617, end: 20190814
  3. CARVEDILOL. [Interacting]
     Active Substance: CARVEDILOL
     Dosage: 12.5 MG, 2X/DAY (25 MG 1/2-0-1/2)
     Route: 048
     Dates: start: 201902, end: 20190619
  4. CALCIMAGON D3 [Concomitant]
     Active Substance: CALCIUM\CHOLECALCIFEROL
     Dosage: 1 DF, 1X/DAY (500/800,  0-1-0)
  5. ALDACTONE [Suspect]
     Active Substance: SPIRONOLACTONE
     Dosage: 100 MG, 2X/DAY (50 MG 3-0-2)
  6. LAXOBERON [Concomitant]
     Active Substance: SODIUM PICOSULFATE
     Dosage: 15 GTT, 1X/DAY (15-0-0-0)
  7. DIGOXIN. [Interacting]
     Active Substance: DIGOXIN
     Dosage: 0.25 MG, 1X/DAY (1-0-0)
     Route: 048
     Dates: start: 20190501, end: 20190503
  8. KONAKION MM [Concomitant]
     Active Substance: PHYTONADIONE
     Dosage: 10 MG, 1X/DAY (10 MG-0-0)
  9. TOREM [TORASEMIDE] [Concomitant]
     Active Substance: TORSEMIDE
     Dosage: 10 MG, 2X/DAY (1-0,5-0)
  10. PANTOPRAZOL MEPHA [Concomitant]
     Active Substance: PANTOPRAZOLE SODIUM
     Dosage: 40 MG, 1X/DAY (1-0-0)
  11. BELOC ZOK [Concomitant]
     Active Substance: METOPROLOL SUCCINATE
     Dosage: 25 MG, 1X/DAY ( 1-0-0)
     Dates: start: 20190621, end: 20190813
  12. DIGOXIN. [Interacting]
     Active Substance: DIGOXIN
     Dosage: 0.5 MG, UNK (IN TOTAL)
     Route: 042
     Dates: start: 20190616, end: 20190616
  13. CARVEDILOL. [Interacting]
     Active Substance: CARVEDILOL
     Dosage: 12.5 MG, 2X/DAY (STOP INCIDENTAL EVENT DUE TO AMBULATORY HVPG MEASUREMENT...)
     Route: 048
     Dates: start: 20190718, end: 20190812
  14. DUPHALAC [Concomitant]
     Active Substance: LACTULOSE
     Dosage: 20 ML, 3X/DAY (1-1-1)

REACTIONS (6)
  - Nausea [Recovered/Resolved]
  - Weight decreased [Recovering/Resolving]
  - Vomiting [Recovered/Resolved]
  - Drug interaction [Recovered/Resolved]
  - Toxicity to various agents [Recovered/Resolved]
  - Electrocardiogram repolarisation abnormality [Recovered/Resolved]

NARRATIVE: CASE EVENT DATE: 201906
